FAERS Safety Report 16738825 (Version 2)
Quarter: 2020Q1

REPORT INFORMATION
  Report Type: Report from Study
  Country: FR (occurrence: FR)
  Receive Date: 20190826
  Receipt Date: 20200212
  Transmission Date: 20200409
  Serious: Yes (Other)
  Sender: FDA-Public Use
  Company Number: FR-ROCHE-2383951

PATIENT

DRUGS (5)
  1. TOCILIZUMAB. [Suspect]
     Active Substance: TOCILIZUMAB
     Indication: JUVENILE IDIOPATHIC ARTHRITIS
     Route: 065
  2. TOCILIZUMAB. [Suspect]
     Active Substance: TOCILIZUMAB
     Indication: INFLAMMATION
  3. PREDNISONE. [Concomitant]
     Active Substance: PREDNISONE
  4. METHOTREXATE. [Concomitant]
     Active Substance: METHOTREXATE
  5. TOCILIZUMAB. [Suspect]
     Active Substance: TOCILIZUMAB
     Indication: UVEITIS

REACTIONS (12)
  - Skin reaction [Unknown]
  - Scleroderma [Unknown]
  - Intentional product use issue [Unknown]
  - Off label use [Unknown]
  - Cutaneous vasculitis [Unknown]
  - Haemophagocytic lymphohistiocytosis [Unknown]
  - Fasciitis [Unknown]
  - Infusion related reaction [Unknown]
  - Hepatic function abnormal [Unknown]
  - Dizziness [Unknown]
  - Infection [Unknown]
  - Skin hypertrophy [Unknown]
